FAERS Safety Report 9775182 (Version 1)
Quarter: 2013Q4

REPORT INFORMATION
  Report Type: Spontaneous
  Country: US (occurrence: None)
  Receive Date: 20131219
  Receipt Date: 20131219
  Transmission Date: 20140711
  Serious: Yes (Life-Threatening)
  Sender: FDA-Public Use
  Company Number: None

PATIENT
  Age: 66 Year
  Sex: Male

DRUGS (2)
  1. ANTIBACTERIAL LIQUID SOAP [Suspect]
     Indication: INFECTION PROPHYLAXIS
  2. ANTIBACTERIAL LIQUID SOAP [Suspect]

REACTIONS (4)
  - Feeling abnormal [None]
  - Dermatitis allergic [None]
  - Throat tightness [None]
  - Dyspnoea [None]
